FAERS Safety Report 23548361 (Version 1)
Quarter: 2024Q1

REPORT INFORMATION
  Report Type: Spontaneous
  Country: US (occurrence: None)
  Receive Date: 20240220
  Receipt Date: 20240220
  Transmission Date: 20240409
  Serious: Yes (Hospitalization)
  Sender: FDA-Public Use
  Company Number: None

PATIENT
  Age: 60 Year
  Sex: Male
  Weight: 61.2 kg

DRUGS (3)
  1. CISPLATIN [Suspect]
     Active Substance: CISPLATIN
     Dates: end: 202402
  2. VANCOMYCIN [Concomitant]
     Active Substance: VANCOMYCIN
  3. ZOSYN [Concomitant]
     Active Substance: PIPERACILLIN SODIUM\TAZOBACTAM SODIUM

REACTIONS (12)
  - Fall [None]
  - Pneumonia [None]
  - Pancytopenia [None]
  - Neutropenic sepsis [None]
  - Septic shock [None]
  - Deep vein thrombosis [None]
  - Pulmonary embolism [None]
  - Acute respiratory failure [None]
  - Hypotension [None]
  - Immune thrombocytopenia [None]
  - Haematochezia [None]
  - Loss of consciousness [None]

NARRATIVE: CASE EVENT DATE: 20240212
